FAERS Safety Report 21083154 (Version 2)
Quarter: 2022Q3

REPORT INFORMATION
  Report Type: Spontaneous
  Country: JP (occurrence: JP)
  Receive Date: 20220714
  Receipt Date: 20220720
  Transmission Date: 20221026
  Serious: Yes (Other)
  Sender: FDA-Public Use
  Company Number: JP-PFIZER INC-202200937108

PATIENT

DRUGS (3)
  1. CORTRIL [Interacting]
     Active Substance: HYDROCORTISONE
     Dosage: 15 MG, DAILY
     Route: 048
  2. PHENYTOIN [Interacting]
     Active Substance: PHENYTOIN
     Dosage: UNK
     Route: 048
  3. PHENYTOIN [Interacting]
     Active Substance: PHENYTOIN
     Dosage: UNK
     Route: 048

REACTIONS (3)
  - Pneumonia [Unknown]
  - Infection [Unknown]
  - Drug interaction [Unknown]
